FAERS Safety Report 9659259 (Version 3)
Quarter: 2014Q1

REPORT INFORMATION
  Report Type: Report from Study
  Country: CN (occurrence: CN)
  Receive Date: 20131031
  Receipt Date: 20140312
  Transmission Date: 20141002
  Serious: Yes (Hospitalization)
  Sender: FDA-Public Use
  Company Number: CN-BRISTOL-MYERS SQUIBB COMPANY-19647841

PATIENT
  Age: 60 Year
  Sex: Male
  Weight: 58 kg

DRUGS (3)
  1. SAXAGLIPTIN [Suspect]
     Indication: TYPE 2 DIABETES MELLITUS
     Dosage: 1D6037P:MAR14
     Route: 048
     Dates: start: 20130711, end: 20131016
  2. RIFAMPICIN [Concomitant]
  3. ISONIAZID [Concomitant]

REACTIONS (1)
  - Tuberculosis [Recovered/Resolved]
